FAERS Safety Report 23825278 (Version 1)
Quarter: 2024Q2

REPORT INFORMATION
  Report Type: Spontaneous
  Country: KR (occurrence: KR)
  Receive Date: 20240507
  Receipt Date: 20240507
  Transmission Date: 20240716
  Serious: Yes (Life-Threatening)
  Sender: FDA-Public Use
  Company Number: KR-SUN PHARMACEUTICAL INDUSTRIES LTD-2024R1-445206

PATIENT
  Age: 7 Year
  Sex: Female

DRUGS (5)
  1. DEXAMETHASONE [Suspect]
     Active Substance: DEXAMETHASONE
     Indication: Cranial nerve paralysis
     Dosage: 0.5 MILLIGRAM/KILOGRAM, DAILY
     Route: 065
  2. DEXAMETHASONE [Suspect]
     Active Substance: DEXAMETHASONE
     Dosage: 0.25 MILLIGRAM/KILOGRAM, DAILY
     Route: 065
  3. DEXAMETHASONE [Suspect]
     Active Substance: DEXAMETHASONE
     Dosage: 1.25 MILLIGRAM/KILOGRAM, DAILY
     Route: 065
  4. METHYLPREDNISOLONE [Suspect]
     Active Substance: METHYLPREDNISOLONE
     Indication: Cranial nerve paralysis
     Dosage: 1 MILLIGRAM/KILOGRAM, DAILY
     Route: 042
  5. MANNITOL [Concomitant]
     Active Substance: MANNITOL
     Indication: Papilloedema
     Dosage: UNK
     Route: 065

REACTIONS (1)
  - Condition aggravated [Unknown]
